FAERS Safety Report 23873744 (Version 1)
Quarter: 2024Q2

REPORT INFORMATION
  Report Type: Spontaneous
  Country: US (occurrence: None)
  Receive Date: 20240517
  Receipt Date: 20240517
  Transmission Date: 20240716
  Serious: Yes (Life-Threatening, Hospitalization)
  Sender: FDA-Public Use
  Company Number: None

PATIENT
  Sex: Female

DRUGS (1)
  1. ARIPIPRAZOLE [Suspect]
     Active Substance: ARIPIPRAZOLE
     Dosage: FREQUENCY : DAILY;?
     Route: 048

REACTIONS (4)
  - Nervous system disorder [None]
  - Leukocytosis [None]
  - Pyrexia [None]
  - Muscle spasticity [None]
